FAERS Safety Report 23332760 (Version 2)
Quarter: 2024Q1

REPORT INFORMATION
  Report Type: Report from Study
  Country: CN (occurrence: CN)
  Receive Date: 20231222
  Receipt Date: 20240117
  Transmission Date: 20240410
  Serious: No
  Sender: FDA-Public Use
  Company Number: CN-PFIZER INC-PV202300204034

PATIENT
  Age: 85 Year
  Sex: Male

DRUGS (75)
  1. NIRMATRELVIR\RITONAVIR [Suspect]
     Active Substance: NIRMATRELVIR\RITONAVIR
     Indication: COVID-19
     Dosage: UNK
     Route: 048
     Dates: start: 20220401
  2. NIRMATRELVIR\RITONAVIR [Suspect]
     Active Substance: NIRMATRELVIR\RITONAVIR
     Dosage: [NIRMATRELVIR 300 MG/RITONAVIR 100 MG], 2X/DAY
     Route: 048
     Dates: start: 20220403, end: 20220404
  3. NIRMATRELVIR\RITONAVIR [Suspect]
     Active Substance: NIRMATRELVIR\RITONAVIR
     Dosage: [NIRMATRELVIR 150 MG/RITONAVIR 100 MG]
     Route: 048
     Dates: start: 20220404, end: 20220408
  4. HERBALS\MENTHOL [Concomitant]
     Active Substance: HERBALS\MENTHOL
     Indication: COVID-19
     Dosage: UNK
     Route: 048
     Dates: start: 20220324, end: 20220324
  5. HERBALS\MENTHOL [Concomitant]
     Active Substance: HERBALS\MENTHOL
     Dosage: UNK
     Route: 048
     Dates: start: 20220327, end: 20220327
  6. HERBALS\MENTHOL [Concomitant]
     Active Substance: HERBALS\MENTHOL
     Dosage: UNK
     Route: 048
     Dates: start: 20220329, end: 20220409
  7. HERBALS\MENTHOL [Concomitant]
     Active Substance: HERBALS\MENTHOL
     Dosage: NOT ONGOING
     Route: 048
     Dates: start: 20220407
  8. COMPOUND GLYCYRRHIZA [FOENICULUM VULGARE;GLYCYRRHIZA SPP.;SENNA SPP. L [Concomitant]
     Indication: COVID-19
     Dosage: UNK
     Route: 048
     Dates: start: 20220325, end: 20220325
  9. COMPOUND GLYCYRRHIZA [FOENICULUM VULGARE;GLYCYRRHIZA SPP.;SENNA SPP. L [Concomitant]
     Dosage: UNK
     Route: 048
     Dates: start: 20220402
  10. COMPOUND GLYCYRRHIZA [FOENICULUM VULGARE;GLYCYRRHIZA SPP.;SENNA SPP. L [Concomitant]
     Dosage: UNK
     Route: 048
     Dates: start: 20220403, end: 20220409
  11. NIFEDIPINE [Concomitant]
     Active Substance: NIFEDIPINE
     Dosage: SUSTAINED-RELEASE TABLETS, FOR MEDICAL HISTORY
     Route: 048
     Dates: start: 20220326, end: 20220326
  12. VITAMIN C [Concomitant]
     Active Substance: ASCORBIC ACID
     Indication: Supplementation therapy
     Dosage: UNK
     Route: 048
     Dates: start: 20220327, end: 20220409
  13. LEVOFLOXACIN [Concomitant]
     Active Substance: LEVOFLOXACIN
     Indication: COVID-19
     Dosage: UNK
     Route: 048
     Dates: start: 20220328, end: 20220329
  14. LEVOFLOXACIN [Concomitant]
     Active Substance: LEVOFLOXACIN
     Dosage: UNK
     Route: 048
     Dates: start: 20220330, end: 20220404
  15. BENSERAZIDE HYDROCHLORIDE\LEVODOPA [Concomitant]
     Active Substance: BENSERAZIDE HYDROCHLORIDE\LEVODOPA
     Indication: Parkinson^s disease
     Dosage: UNK
     Route: 048
     Dates: start: 20220328
  16. BENSERAZIDE HYDROCHLORIDE\LEVODOPA [Concomitant]
     Active Substance: BENSERAZIDE HYDROCHLORIDE\LEVODOPA
     Dosage: UNK
     Route: 048
     Dates: start: 20220329, end: 20220409
  17. CEFTRIAXONE SODIUM [Concomitant]
     Active Substance: CEFTRIAXONE SODIUM
     Indication: COVID-19
     Dosage: UNK
     Route: 042
     Dates: start: 20220329, end: 20220329
  18. FUROSEMIDE [Concomitant]
     Active Substance: FUROSEMIDE
     Indication: Diuretic therapy
     Dosage: UNK
     Route: 042
     Dates: start: 20220329, end: 20220329
  19. FUROSEMIDE [Concomitant]
     Active Substance: FUROSEMIDE
     Indication: Blood potassium decreased
     Dosage: NOT ONGOING
     Route: 042
     Dates: start: 20220330
  20. FUROSEMIDE [Concomitant]
     Active Substance: FUROSEMIDE
     Dosage: NOT ONGOING
     Route: 042
     Dates: start: 20220407
  21. AMINO ACIDS, SOURCE UNSPECIFIED [Concomitant]
     Active Substance: AMINO ACIDS, SOURCE UNSPECIFIED
     Indication: Nutritional supplementation
     Dosage: COMPOUND AMINO ACID INJECTION
     Route: 042
     Dates: start: 20220330
  22. AMINO ACIDS, SOURCE UNSPECIFIED [Concomitant]
     Active Substance: AMINO ACIDS, SOURCE UNSPECIFIED
     Dosage: COMPOUND AMINO ACID INJECTION
     Route: 042
     Dates: start: 20220330, end: 20220409
  23. METOPROLOL TARTRATE [Concomitant]
     Active Substance: METOPROLOL TARTRATE
     Dosage: FOR MEDICAL HISTORY
     Route: 048
     Dates: start: 20220328, end: 20220403
  24. FLUPENTIXOL\MELITRACEN [Concomitant]
     Active Substance: FLUPENTIXOL\MELITRACEN
     Indication: Anxiety
     Dosage: UNK
     Route: 048
     Dates: start: 20220328, end: 20220409
  25. FLUPENTIXOL\MELITRACEN [Concomitant]
     Active Substance: FLUPENTIXOL\MELITRACEN
     Dosage: NOT ONGOING
     Route: 048
     Dates: start: 20220403
  26. VITAMIN B6 [Concomitant]
     Active Substance: PYRIDOXINE HYDROCHLORIDE
     Indication: Nutritional supplementation
     Dosage: UNK
     Route: 042
     Dates: start: 20220330, end: 20220403
  27. VITAMIN C [Concomitant]
     Active Substance: ASCORBIC ACID
     Indication: Nutritional supplementation
     Dosage: UNK
     Route: 042
     Dates: start: 20220330, end: 20220403
  28. VITAMIN C [Concomitant]
     Active Substance: ASCORBIC ACID
     Indication: Mineral supplementation
     Dosage: UNK
     Route: 042
     Dates: start: 20220402, end: 20220403
  29. VITAMIN C [Concomitant]
     Active Substance: ASCORBIC ACID
     Dosage: UNK
     Route: 042
     Dates: start: 20220408
  30. METHYLPREDNISOLONE SODIUM SUCCINATE [Concomitant]
     Active Substance: METHYLPREDNISOLONE SODIUM SUCCINATE
     Indication: COVID-19
     Dosage: UNK
     Route: 042
     Dates: start: 20220401, end: 20220404
  31. METHYLPREDNISOLONE SODIUM SUCCINATE [Concomitant]
     Active Substance: METHYLPREDNISOLONE SODIUM SUCCINATE
     Indication: Infection
     Dosage: NOT ONGOING
     Route: 042
     Dates: start: 20220406
  32. METHYLPREDNISOLONE SODIUM SUCCINATE [Concomitant]
     Active Substance: METHYLPREDNISOLONE SODIUM SUCCINATE
     Dosage: NOT ONGOING
     Route: 042
     Dates: start: 20220407
  33. METHYLPREDNISOLONE SODIUM SUCCINATE [Concomitant]
     Active Substance: METHYLPREDNISOLONE SODIUM SUCCINATE
     Dosage: UNK
     Route: 042
     Dates: start: 20220408
  34. ENOXAPARIN SODIUM [Concomitant]
     Active Substance: ENOXAPARIN SODIUM
     Indication: Thrombosis prophylaxis
     Dosage: UNK
     Route: 058
     Dates: start: 20220401, end: 20220408
  35. ENOXAPARIN SODIUM [Concomitant]
     Active Substance: ENOXAPARIN SODIUM
     Dosage: UNK
     Route: 058
     Dates: start: 20220408, end: 20220409
  36. POTASSIUM CHLORIDE [Concomitant]
     Active Substance: POTASSIUM CHLORIDE
     Indication: Mineral supplementation
     Dosage: UNK
     Route: 042
     Dates: start: 20220402, end: 20220403
  37. POTASSIUM CHLORIDE [Concomitant]
     Active Substance: POTASSIUM CHLORIDE
     Dosage: UNK
     Route: 042
     Dates: start: 20220408
  38. DIETARY SUPPLEMENT [Concomitant]
     Active Substance: DIETARY SUPPLEMENT
     Indication: Nutritional supplementation
     Dosage: NASOGASTRIC
     Dates: start: 20220402, end: 20220407
  39. DIETARY SUPPLEMENT [Concomitant]
     Active Substance: DIETARY SUPPLEMENT
     Dosage: NASOGASTRIC
     Dates: start: 20220405, end: 20220409
  40. AMBROXOL HYDROCHLORIDE [Concomitant]
     Active Substance: AMBROXOL HYDROCHLORIDE
     Indication: COVID-19
     Dosage: UNK
     Route: 042
     Dates: start: 20220404, end: 20220407
  41. AMBROXOL HYDROCHLORIDE [Concomitant]
     Active Substance: AMBROXOL HYDROCHLORIDE
     Dosage: UNK
     Route: 042
     Dates: start: 20220407, end: 20220409
  42. ALBUMIN HUMAN [Concomitant]
     Active Substance: ALBUMIN HUMAN
     Indication: Supplementation therapy
     Dosage: UNK
     Route: 042
     Dates: start: 20220404, end: 20220407
  43. ALBUMIN HUMAN [Concomitant]
     Active Substance: ALBUMIN HUMAN
     Dosage: UNK
     Route: 042
     Dates: start: 20220408
  44. METOPROLOL TARTRATE [Concomitant]
     Active Substance: METOPROLOL TARTRATE
     Dosage: SUSTAINED-RELEASE TABLETS FOR MEDICAL HISTORY
     Route: 048
     Dates: start: 20220405, end: 20220408
  45. METOPROLOL TARTRATE [Concomitant]
     Active Substance: METOPROLOL TARTRATE
     Dosage: SUSTAINED-RELEASE TABLETS FOR MEDICAL HISTORY, NOT ONGOING
     Route: 048
     Dates: start: 20220406
  46. LEVOFLOXACIN [Concomitant]
     Active Substance: LEVOFLOXACIN
     Indication: Infection
     Dosage: UNK
     Route: 047
     Dates: start: 20220407, end: 20220409
  47. LEVOFLOXACIN [Concomitant]
     Active Substance: LEVOFLOXACIN
     Dosage: UNK
     Route: 047
     Dates: start: 20220408, end: 20220409
  48. LEVOFLOXACIN [Concomitant]
     Active Substance: LEVOFLOXACIN
     Dosage: UNK
     Route: 047
     Dates: start: 20220407
  49. MEROPENEM [Concomitant]
     Active Substance: MEROPENEM
     Indication: Infection
     Dosage: UNK
     Route: 042
     Dates: start: 20220408, end: 20220409
  50. INSULIN HUMAN [Concomitant]
     Active Substance: INSULIN HUMAN
     Dosage: FOR MEDICAL HISTORY, NOT ONGOING
     Route: 058
     Dates: start: 20220401
  51. INSULIN HUMAN [Concomitant]
     Active Substance: INSULIN HUMAN
     Dosage: FOR MEDICAL HISTORY, NOT ONGOING
     Route: 058
     Dates: start: 20220405
  52. INSULIN HUMAN [Concomitant]
     Active Substance: INSULIN HUMAN
     Dosage: FOR MEDICAL HISTORY, NOT ONGOING
     Route: 058
     Dates: start: 20220407
  53. INSULIN HUMAN [Concomitant]
     Active Substance: INSULIN HUMAN
     Dosage: FOR MEDICAL HISTORY
     Route: 058
     Dates: start: 20220409
  54. DYPHYLLINE [Concomitant]
     Active Substance: DYPHYLLINE
     Indication: COVID-19
     Dosage: NOT ONGOING
     Route: 042
     Dates: start: 20220406
  55. OMEPRAZOLE SODIUM [Concomitant]
     Active Substance: OMEPRAZOLE SODIUM
     Indication: Infection
     Dosage: NOT ONGOING
     Route: 042
     Dates: start: 20220407
  56. OMEPRAZOLE SODIUM [Concomitant]
     Active Substance: OMEPRAZOLE SODIUM
     Indication: Drug therapy
     Dosage: UNK
     Route: 042
     Dates: start: 20220409
  57. SODIUM POLYSTYRENE SULFONATE [Concomitant]
     Active Substance: SODIUM POLYSTYRENE SULFONATE
     Indication: Blood potassium decreased
     Dosage: POWDER, NASOGASTRIC, NOT ONGOING
     Dates: start: 20220407
  58. SODIUM POLYSTYRENE SULFONATE [Concomitant]
     Active Substance: SODIUM POLYSTYRENE SULFONATE
     Dosage: POWDER, NASOGASTRIC
     Dates: start: 20220408
  59. CALCIUM GLUCONATE [Concomitant]
     Active Substance: CALCIUM GLUCONATE
     Indication: Blood potassium decreased
     Dosage: NOT ONGOING
     Route: 042
     Dates: start: 20220407
  60. CALCIUM GLUCONATE [Concomitant]
     Active Substance: CALCIUM GLUCONATE
     Dosage: UNK
     Route: 042
     Dates: start: 20220409
  61. TORSEMIDE [Concomitant]
     Active Substance: TORSEMIDE
     Indication: Diuretic therapy
     Dosage: NOT ONGOING
     Route: 042
     Dates: start: 20220407
  62. PROPOFOL [Concomitant]
     Active Substance: PROPOFOL
     Indication: Sedation
     Dosage: NOT ONGOING
     Route: 042
     Dates: start: 20220407
  63. DEXMEDETOMIDINE HYDROCHLORIDE [Concomitant]
     Active Substance: DEXMEDETOMIDINE HYDROCHLORIDE
     Indication: Sedation
     Dosage: UNK
     Route: 042
     Dates: start: 20220407
  64. REMIFENTANIL HYDROCHLORIDE [Concomitant]
     Active Substance: REMIFENTANIL HYDROCHLORIDE
     Indication: Analgesic therapy
     Dosage: UNK
     Route: 042
     Dates: start: 20220407
  65. COMPOUND CHLORHEXIDINE GARGLE [Concomitant]
     Indication: Dental disorder prophylaxis
     Dosage: UNK
     Route: 048
     Dates: start: 20220408
  66. NOREPINEPHRINE BITARTRATE [Concomitant]
     Active Substance: NOREPINEPHRINE BITARTRATE
     Indication: Shock
     Dosage: UNK
     Route: 042
     Dates: start: 20220408
  67. GLYCERIN [Concomitant]
     Active Substance: GLYCERIN
     Indication: Laxative supportive care
     Dosage: UNK
     Route: 050
     Dates: start: 20220408
  68. SODIUM BICARBONATE [Concomitant]
     Active Substance: SODIUM BICARBONATE
     Indication: Acidosis
     Dosage: UNK
     Route: 042
     Dates: start: 20220409
  69. LIDOCAINE HYDROCHLORIDE [Concomitant]
     Active Substance: LIDOCAINE HYDROCHLORIDE
     Indication: Arrhythmia
     Dosage: UNK
     Route: 042
     Dates: start: 20220409
  70. ATROPINE SULFATE [Concomitant]
     Active Substance: ATROPINE SULFATE
     Indication: Cardiac arrest
     Dosage: UNK
     Route: 042
     Dates: start: 20220409
  71. ARTICAINE HYDROCHLORIDE\EPINEPHRINE BITARTRATE [Concomitant]
     Active Substance: ARTICAINE HYDROCHLORIDE\EPINEPHRINE BITARTRATE
     Indication: Arrhythmia
     Dosage: UNK
     Route: 042
     Dates: start: 20220409
  72. AMIODARONE HYDROCHLORIDE [Concomitant]
     Active Substance: AMIODARONE HYDROCHLORIDE
     Indication: Drug therapy
     Dosage: UNK
     Route: 042
     Dates: start: 20220409
  73. DEXTROSE [Concomitant]
     Active Substance: DEXTROSE\DEXTROSE MONOHYDRATE
     Indication: Blood potassium decreased
     Dosage: UNK
     Route: 042
     Dates: start: 20220409
  74. OXYGEN [Concomitant]
     Active Substance: OXYGEN
     Indication: COVID-19
     Dosage: UNK
     Route: 055
     Dates: start: 20220328, end: 20220330
  75. OXYGEN [Concomitant]
     Active Substance: OXYGEN
     Dosage: UNK
     Route: 055
     Dates: start: 20220330, end: 20220409

REACTIONS (1)
  - Overdose [Unknown]

NARRATIVE: CASE EVENT DATE: 20220401
